FAERS Safety Report 13668818 (Version 3)
Quarter: 2017Q3

REPORT INFORMATION
  Report Type: Spontaneous
  Country: JP (occurrence: JP)
  Receive Date: 20170620
  Receipt Date: 20170825
  Transmission Date: 20171127
  Serious: Yes (Life-Threatening, Hospitalization, Other)
  Sender: FDA-Public Use
  Company Number: JP-OTSUKA-2017_013219

PATIENT
  Age: 44 Year
  Sex: Female

DRUGS (11)
  1. SAMSCA [Suspect]
     Active Substance: TOLVAPTAN
     Indication: PLEURAL EFFUSION
     Dosage: 3.75 MG, DAILY
     Route: 048
     Dates: start: 20170525, end: 20170531
  2. FUROSEMIDE. [Concomitant]
     Active Substance: FUROSEMIDE
     Indication: PRODUCT USED FOR UNKNOWN INDICATION
     Dosage: 1 A, DAILY
     Route: 042
     Dates: start: 20170516, end: 20170531
  3. PROMAC [Concomitant]
     Active Substance: NITROFURANTOIN
     Indication: PRODUCT USED FOR UNKNOWN INDICATION
     Dosage: 2 PACKETS, DAILY
     Route: 048
     Dates: start: 20170516
  4. SAMSCA [Suspect]
     Active Substance: TOLVAPTAN
     Indication: ASCITES
  5. SOLDACTONE [Concomitant]
     Active Substance: CANRENOATE POTASSIUM
     Indication: PRODUCT USED FOR UNKNOWN INDICATION
     Dosage: 1 V, DAILY
     Route: 042
     Dates: start: 20170516, end: 20170531
  6. ALBUMIN (HUMAN) [Concomitant]
     Active Substance: ALBUMIN HUMAN
     Indication: PRODUCT USED FOR UNKNOWN INDICATION
     Dosage: UNK
     Route: 065
     Dates: start: 20170516
  7. FUROSEMIDE. [Concomitant]
     Active Substance: FUROSEMIDE
     Indication: PRODUCT USED FOR UNKNOWN INDICATION
     Dosage: 20 MG, DAILY
     Route: 048
  8. ALDACTONE [Concomitant]
     Active Substance: SPIRONOLACTONE
     Indication: PRODUCT USED FOR UNKNOWN INDICATION
     Dosage: 25 MG, DAILY
     Route: 048
  9. LIVACT [Concomitant]
     Active Substance: AMINO ACIDS
     Indication: PRODUCT USED FOR UNKNOWN INDICATION
     Dosage: 3 PACKETS, DAILY
     Route: 048
     Dates: start: 20170516
  10. ETIZOLAM [Concomitant]
     Active Substance: ETIZOLAM
     Indication: PRODUCT USED FOR UNKNOWN INDICATION
     Dosage: 0.5 MG, DAILY
     Route: 048
     Dates: start: 20170516
  11. ACINON [Concomitant]
     Active Substance: NIZATIDINE
     Indication: PRODUCT USED FOR UNKNOWN INDICATION
     Dosage: 2 T, DAILY
     Route: 048
     Dates: start: 20170516

REACTIONS (1)
  - Liver disorder [Recovering/Resolving]

NARRATIVE: CASE EVENT DATE: 20170529
